FAERS Safety Report 4345779-2 (Version None)
Quarter: 2004Q2

REPORT INFORMATION
  Report Type: 
  Country: None (occurrence: None)
  Receive Date: 20040421
  Receipt Date: 20040413
  Transmission Date: 20050107
  Serious: Yes (Hospitalization)
  Sender: FDA-Public Use
  Company Number: 2004209070DE

PATIENT
  Sex: Female

DRUGS (4)
  1. AZULFIDINE [Suspect]
  2. MARCUMAR [Suspect]
     Dosage: ORAL
     Route: 048
  3. STEROIDS [Concomitant]
  4. BUPRENORPHINE HCL [Concomitant]

REACTIONS (2)
  - DRUG INTERACTION [None]
  - PROTHROMBIN TIME PROLONGED [None]
